FAERS Safety Report 5016985-9 (Version None)
Quarter: 2006Q2

REPORT INFORMATION
  Report Type: 
  Country: None (occurrence: None)
  Receive Date: 20060526
  Receipt Date: 20060515
  Transmission Date: 20061013
  Serious: Yes (Hospitalization)
  Sender: FDA-Public Use
  Company Number: 2006BH009924

PATIENT
  Age: 76 Year
  Sex: Male

DRUGS (4)
  1. EPINEPHRINE [Suspect]
     Indication: ANGIONEUROTIC OEDEMA
     Dosage: 0.22 CC; IV
     Route: 042
  2. DIPHENHYDRAMINE HCL [Concomitant]
  3. METHYLPREDNISOLONE [Concomitant]
  4. FAMOTIDINE [Concomitant]

REACTIONS (4)
  - BLOOD PRESSURE INCREASED [None]
  - DYSPHAGIA [None]
  - ELECTROCARDIOGRAM ST-T CHANGE [None]
  - TACHYCARDIA [None]
